FAERS Safety Report 6722501-3 (Version None)
Quarter: 2010Q2

REPORT INFORMATION
  Report Type: 
  Country: None (occurrence: None)
  Receive Date: 20100512
  Receipt Date: 20100502
  Transmission Date: 20101027
  Serious: Yes (Hospitalization)
  Sender: FDA-Public Use
  Company Number: US-AMGEN-KDL410028

PATIENT
  Sex: Female

DRUGS (2)
  1. ENBREL [Suspect]
     Indication: RHEUMATOID ARTHRITIS
     Route: 058
     Dates: start: 20080201
  2. METHOTREXATE [Concomitant]
     Route: 048

REACTIONS (5)
  - ABDOMINAL HERNIA [None]
  - IMPAIRED HEALING [None]
  - JOINT EFFUSION [None]
  - RESPIRATORY ARREST [None]
  - RHEUMATOID ARTHRITIS [None]
